FAERS Safety Report 4568352-X (Version None)
Quarter: 2005Q1

REPORT INFORMATION
  Report Type: 
  Country: None (occurrence: None)
  Receive Date: 20050131
  Receipt Date: 20050118
  Transmission Date: 20050727
  Serious: Yes (Hospitalization)
  Sender: FDA-Public Use
  Company Number: 212066

PATIENT
  Age: 53 Year
  Sex: Female

DRUGS (4)
  1. MABTHERA (RITUXIMAB) CONC FOR SOLUTION FOR INFUSION [Suspect]
     Indication: DIFFUSE LARGE B-CELL LYMPHOMA
  2. IFOSFAMIDE [Suspect]
     Indication: DIFFUSE LARGE B-CELL LYMPHOMA
  3. CARBOPLATIN [Suspect]
     Indication: DIFFUSE LARGE B-CELL LYMPHOMA
  4. ETOPOSIDE [Suspect]
     Indication: DIFFUSE LARGE B-CELL LYMPHOMA

REACTIONS (9)
  - ASTHENIA [None]
  - DEHYDRATION [None]
  - FEBRILE NEUTROPENIA [None]
  - HAEMOGLOBIN DECREASED [None]
  - NAUSEA [None]
  - PLATELET COUNT DECREASED [None]
  - RENAL IMPAIRMENT [None]
  - VOMITING [None]
  - WHITE BLOOD CELL COUNT DECREASED [None]
